FAERS Safety Report 9237294 (Version 1)
Quarter: 2013Q2

REPORT INFORMATION
  Report Type: Spontaneous
  Country: US (occurrence: US)
  Receive Date: 20130417
  Receipt Date: 20130417
  Transmission Date: 20140414
  Serious: Yes (Other)
  Sender: FDA-Public Use
  Company Number: US-ASTRAZENECA-2013SE22973

PATIENT
  Age: 41 Year
  Sex: Female
  Weight: 99.8 kg

DRUGS (6)
  1. SEROQUEL XR [Suspect]
     Indication: ANXIETY
     Route: 048
     Dates: start: 2007, end: 2012
  2. SEROQUEL XR [Suspect]
     Indication: AGORAPHOBIA
     Route: 048
     Dates: start: 2007, end: 2012
  3. SEROQUEL XR [Suspect]
     Indication: ANXIETY
     Route: 048
     Dates: start: 2012
  4. SEROQUEL XR [Suspect]
     Indication: AGORAPHOBIA
     Route: 048
     Dates: start: 2012
  5. KLONAPIN [Concomitant]
     Indication: ANXIETY
     Dosage: UNK DAILY
     Route: 048
  6. NORTRIPTYLINE [Concomitant]
     Indication: ANXIETY
     Dosage: UNK DAILY
     Route: 048

REACTIONS (8)
  - Exposure during pregnancy [Recovered/Resolved]
  - Abortion spontaneous [Recovered/Resolved]
  - Anxiety [Not Recovered/Not Resolved]
  - Agoraphobia [Not Recovered/Not Resolved]
  - Feeling abnormal [Not Recovered/Not Resolved]
  - Weight increased [Not Recovered/Not Resolved]
  - Intentional drug misuse [Unknown]
  - Drug ineffective [Not Recovered/Not Resolved]
